FAERS Safety Report 6690449-9 (Version None)
Quarter: 2010Q2

REPORT INFORMATION
  Report Type: 
  Country: None (occurrence: None)
  Receive Date: 20100421
  Receipt Date: 20090710
  Transmission Date: 20101027
  Serious: No
  Sender: FDA-Public Use
  Company Number: US-ASTRAZENECA-2009UW19447

PATIENT
  Age: 65 Year
  Sex: Male
  Weight: 71.7 kg

DRUGS (4)
  1. CASODEX [Suspect]
     Route: 048
  2. LISINOPRIL [Concomitant]
  3. LORAZEPAM [Concomitant]
  4. TIMOLOL [Concomitant]

REACTIONS (3)
  - ALOPECIA [None]
  - BREAST ENLARGEMENT [None]
  - CHILLS [None]
